FAERS Safety Report 8070129-8 (Version None)
Quarter: 2012Q1

REPORT INFORMATION
  Report Type: 
  Country: None (occurrence: None)
  Receive Date: 20120125
  Receipt Date: 20111201
  Transmission Date: 20120608
  Serious: Yes (Death, Other)
  Sender: FDA-Public Use
  Company Number: DE-ROCHE-709207

PATIENT

DRUGS (6)
  1. VINCRISTINE [Suspect]
     Indication: POST TRANSPLANT LYMPHOPROLIFERATIVE DISORDER
     Route: 042
  2. PREDNISONE [Suspect]
     Indication: POST TRANSPLANT LYMPHOPROLIFERATIVE DISORDER
     Route: 048
  3. DOXORUBICIN HCL [Suspect]
     Indication: POST TRANSPLANT LYMPHOPROLIFERATIVE DISORDER
     Route: 065
  4. FILGRASTIM [Suspect]
     Indication: POST TRANSPLANT LYMPHOPROLIFERATIVE DISORDER
     Route: 065
  5. MABTHERA [Suspect]
     Indication: POST TRANSPLANT LYMPHOPROLIFERATIVE DISORDER
     Dosage: ON DAY 1, 8, 15 AND 22
     Route: 042
  6. CYCLOPHOSPHAMIDE [Suspect]
     Indication: POST TRANSPLANT LYMPHOPROLIFERATIVE DISORDER
     Route: 065

REACTIONS (8)
  - INFECTION [None]
  - SEPSIS [None]
  - CYTOMEGALOVIRUS COLITIS [None]
  - PNEUMOCYSTIS JIROVECI PNEUMONIA [None]
  - HAEMORRHAGE [None]
  - POST TRANSPLANT LYMPHOPROLIFERATIVE DISORDER [None]
  - LEUKOPENIA [None]
  - HEPATITIS FULMINANT [None]
